FAERS Safety Report 7372752-2 (Version None)
Quarter: 2011Q1

REPORT INFORMATION
  Report Type: 
  Country: None (occurrence: None)
  Receive Date: 20110324
  Receipt Date: 20110311
  Transmission Date: 20110831
  Serious: Yes (Hospitalization, Other)
  Sender: FDA-Public Use
  Company Number: BR-GENENTECH-302242

PATIENT
  Sex: Female
  Weight: 86 kg

DRUGS (30)
  1. ACTONEL [Concomitant]
     Indication: PRODUCT USED FOR UNKNOWN INDICATION
     Dosage: 35 MG, UNK
  2. DRAMIN [Concomitant]
     Indication: PREMEDICATION
  3. DORFLEX [Concomitant]
     Indication: PRODUCT USED FOR UNKNOWN INDICATION
     Dosage: UNK
  4. NOVALGIN [Concomitant]
     Indication: PRODUCT USED FOR UNKNOWN INDICATION
     Dosage: UNK
  5. TIBOLONE [Concomitant]
     Indication: PRODUCT USED FOR UNKNOWN INDICATION
     Dosage: 1.25 MG, UNK
  6. ACETAMINOPHEN [Concomitant]
     Indication: PREMEDICATION
  7. RITUXIMAB [Suspect]
     Dosage: UNK MG/ML, Q15D
     Route: 042
     Dates: start: 20100825, end: 20100901
  8. ULTRACET [Concomitant]
     Indication: PRODUCT USED FOR UNKNOWN INDICATION
  9. CALCIUM CARBONATE [Concomitant]
     Indication: PRODUCT USED FOR UNKNOWN INDICATION
     Dosage: 500 MG, UNK
  10. DICLOFENAC SODIUM [Concomitant]
     Indication: PRODUCT USED FOR UNKNOWN INDICATION
     Dosage: 70 MG, UNK
  11. BONIVA [Concomitant]
     Indication: PRODUCT USED FOR UNKNOWN INDICATION
  12. FOLIC ACID [Concomitant]
     Indication: PRODUCT USED FOR UNKNOWN INDICATION
  13. VASOPRIL PLUS [Concomitant]
     Indication: PRODUCT USED FOR UNKNOWN INDICATION
     Dosage: 32.5 MG, UNK
  14. AMITRIPTYLINE [Concomitant]
     Indication: PRODUCT USED FOR UNKNOWN INDICATION
     Dosage: 25 MG, UNK
  15. RITUXIMAB [Suspect]
     Dosage: UNK
     Route: 042
     Dates: start: 20090101, end: 20090101
  16. RITUXIMAB [Suspect]
     Indication: RHEUMATOID ARTHRITIS
     Dosage: 1000 MG, Q15D
     Route: 042
     Dates: start: 20090915, end: 20091009
  17. PRESSOTEC [Concomitant]
     Indication: PRODUCT USED FOR UNKNOWN INDICATION
     Dosage: UNK
  18. DICLOFENAC [Concomitant]
     Indication: PAIN
     Dosage: UNK
  19. RIVOTRIL [Concomitant]
     Indication: PRODUCT USED FOR UNKNOWN INDICATION
     Dosage: 2 MG, UNK
  20. LANSOPRAZOLE [Concomitant]
     Indication: PRODUCT USED FOR UNKNOWN INDICATION
  21. PARACETAMOL [Concomitant]
     Indication: PRODUCT USED FOR UNKNOWN INDICATION
  22. RITUXIMAB [Suspect]
     Dosage: UNK
     Route: 042
     Dates: start: 20080101, end: 20080101
  23. PREDNISONE [Concomitant]
     Indication: PRODUCT USED FOR UNKNOWN INDICATION
     Dosage: 5 MG, UNK
  24. TIBOLONE [Concomitant]
     Dosage: 1.5 MG, UNK
  25. CYCLOBENZAPRINE HYDROCHLORIDE [Concomitant]
     Indication: PRODUCT USED FOR UNKNOWN INDICATION
     Dosage: UNK
  26. PROFENID [Concomitant]
     Indication: PRODUCT USED FOR UNKNOWN INDICATION
     Dosage: 320 MG, Q8H
  27. METHOTREXATE [Concomitant]
     Indication: PRODUCT USED FOR UNKNOWN INDICATION
     Dosage: 2.5 MG, UNK
  28. LYRICA [Concomitant]
     Indication: PRODUCT USED FOR UNKNOWN INDICATION
  29. PROFENID [Concomitant]
     Dosage: 320 MG, UNK
  30. TRAMADOL [Concomitant]
     Indication: PRODUCT USED FOR UNKNOWN INDICATION
     Dosage: 50 MG, UNK

REACTIONS (25)
  - WEIGHT INCREASED [None]
  - LOWER LIMB FRACTURE [None]
  - PAIN IN EXTREMITY [None]
  - MALAISE [None]
  - MEDICAL DEVICE COMPLICATION [None]
  - SKIN EXFOLIATION [None]
  - VOMITING [None]
  - HEADACHE [None]
  - FORMICATION [None]
  - BACK PAIN [None]
  - OROPHARYNGEAL PAIN [None]
  - ARTHRALGIA [None]
  - NAUSEA [None]
  - TIBIA FRACTURE [None]
  - ABDOMINAL PAIN [None]
  - PRURITUS [None]
  - DIARRHOEA [None]
  - MOBILITY DECREASED [None]
  - FATIGUE [None]
  - FALL [None]
  - CATARACT [None]
  - BONE PAIN [None]
  - SWELLING [None]
  - PAIN [None]
  - DRY MOUTH [None]
